FAERS Safety Report 24314649 (Version 1)
Quarter: 2024Q3

REPORT INFORMATION
  Report Type: Spontaneous
  Country: SK (occurrence: SK)
  Receive Date: 20240913
  Receipt Date: 20240913
  Transmission Date: 20241016
  Serious: Yes (Other)
  Sender: TAKEDA
  Company Number: SK-JNJFOC-20240907409

PATIENT
  Age: 73 Year
  Sex: Male
  Weight: 96 kg

DRUGS (3)
  1. VELCADE [Suspect]
     Active Substance: BORTEZOMIB
     Indication: Plasma cell myeloma
     Dosage: UNK
     Route: 065
     Dates: start: 201703, end: 201711
  2. DEXAMETHASONE [Suspect]
     Active Substance: DEXAMETHASONE
     Indication: Plasma cell myeloma
     Dosage: UNK
     Route: 065
     Dates: start: 201703, end: 201711
  3. CYCLOPHOSPHAMIDE [Suspect]
     Active Substance: CYCLOPHOSPHAMIDE
     Indication: Plasma cell myeloma
     Dosage: UNK
     Route: 065
     Dates: start: 201703, end: 201711

REACTIONS (3)
  - Plasma cell myeloma [Unknown]
  - Immunoglobulins increased [Unknown]
  - Polyneuropathy [Unknown]
